FAERS Safety Report 16695724 (Version 1)
Quarter: 2019Q3

REPORT INFORMATION
  Report Type: Spontaneous
  Country: US (occurrence: US)
  Receive Date: 20190813
  Receipt Date: 20190813
  Transmission Date: 20191004
  Serious: No
  Sender: FDA-Public Use
  Company Number: US-TEVA-2019-US-1089071

PATIENT

DRUGS (1)
  1. COPAXONE [Suspect]
     Active Substance: GLATIRAMER ACETATE

REACTIONS (8)
  - Pollakiuria [Unknown]
  - Influenza [Unknown]
  - Pyrexia [Unknown]
  - Anxiety [Unknown]
  - Pain [Unknown]
  - Visual impairment [Unknown]
  - Feeling of body temperature change [Unknown]
  - Fatigue [Unknown]

NARRATIVE: CASE EVENT DATE: 20190804
